FAERS Safety Report 8516355-2 (Version None)
Quarter: 2012Q3

REPORT INFORMATION
  Report Type: 
  Country: None (occurrence: None)
  Receive Date: 20120718
  Receipt Date: 20120705
  Transmission Date: 20120928
  Serious: No
  Sender: FDA-Public Use
  Company Number: US-009507513-1207USA002129

PATIENT

DRUGS (2)
  1. VICTRELIS [Suspect]
     Indication: HEPATITIS C
     Dosage: 800 MG, TID
     Route: 048
  2. PROCRIT [Concomitant]

REACTIONS (6)
  - ABDOMINAL DISTENSION [None]
  - FLUSHING [None]
  - ERYTHEMA [None]
  - CONSTIPATION [None]
  - NAUSEA [None]
  - FLATULENCE [None]
